FAERS Safety Report 6384728-2 (Version None)
Quarter: 2009Q4

REPORT INFORMATION
  Report Type: 
  Country: None (occurrence: None)
  Receive Date: 20091001
  Receipt Date: 20090929
  Transmission Date: 20100525
  Serious: Yes (Other)
  Sender: FDA-Public Use
  Company Number: NO-ROXANE LABORATORIES, INC.-2009-RO-01012RO

PATIENT
  Age: 31 Year
  Sex: Female

DRUGS (8)
  1. LORAZEPAM [Suspect]
     Indication: BIPOLAR DISORDER
     Route: 048
  2. LORAZEPAM [Suspect]
     Indication: MANIA
  3. OLANZAPINE [Suspect]
     Indication: BIPOLAR DISORDER
     Route: 048
  4. OLANZAPINE [Suspect]
     Indication: MANIA
  5. OLANZAPINE [Suspect]
  6. ZOPICLONE [Suspect]
     Indication: BIPOLAR DISORDER
     Route: 048
  7. ZOPICLONE [Suspect]
     Indication: MANIA
  8. FLUMAZENIL [Concomitant]
     Indication: LOSS OF CONSCIOUSNESS
     Route: 030

REACTIONS (4)
  - DRUG INTERACTION [None]
  - HYPOTENSION [None]
  - LOSS OF CONSCIOUSNESS [None]
  - SYNCOPE [None]
